FAERS Safety Report 16376358 (Version 1)
Quarter: 2019Q2

REPORT INFORMATION
  Report Type: Spontaneous
  Country: US (occurrence: US)
  Receive Date: 20190531
  Receipt Date: 20190531
  Transmission Date: 20190711
  Serious: No
  Sender: FDA-Public Use
  Company Number: US-MYLANLABS-2019M1048125

PATIENT
  Sex: Male
  Weight: 81.64 kg

DRUGS (1)
  1. ALLOPURINOL MYLAN [Suspect]
     Active Substance: ALLOPURINOL
     Indication: GOUT
     Dosage: UNK

REACTIONS (2)
  - Drug ineffective [Unknown]
  - Gout [Recovering/Resolving]
